FAERS Safety Report 13576745 (Version 1)
Quarter: 2017Q2

REPORT INFORMATION
  Report Type: Spontaneous
  Country: US (occurrence: US)
  Receive Date: 20170524
  Receipt Date: 20170524
  Transmission Date: 20170830
  Serious: No
  Sender: FDA-Public Use
  Company Number: None

PATIENT
  Age: 50 Year
  Sex: Male
  Weight: 96 kg

DRUGS (2)
  1. NEUPRO [Suspect]
     Active Substance: ROTIGOTINE
     Indication: TREMOR
     Route: 062
  2. NEUPRO [Suspect]
     Active Substance: ROTIGOTINE
     Indication: CEREBROVASCULAR ACCIDENT
     Route: 062

REACTIONS (4)
  - Fatigue [None]
  - Loss of personal independence in daily activities [None]
  - Insomnia [None]
  - Exercise tolerance decreased [None]

NARRATIVE: CASE EVENT DATE: 20170517
